FAERS Safety Report 4782510-0 (Version None)
Quarter: 2005Q3

REPORT INFORMATION
  Report Type: 
  Country: None (occurrence: None)
  Receive Date: 20050929
  Receipt Date: 20050124
  Transmission Date: 20060218
  Serious: No
  Sender: FDA-Public Use
  Company Number: 395874

PATIENT
  Age: 59 Year
  Sex: Male

DRUGS (9)
  1. CARVEDILOL [Suspect]
     Dosage: 6.25MG TWICE PER DAY
     Route: 048
     Dates: start: 20050105
  2. GLYBURIDE [Concomitant]
  3. AVAPRO [Concomitant]
  4. LASIX [Concomitant]
  5. LISINOPRIL [Concomitant]
  6. POTASSIUM CHLORIDE [Concomitant]
  7. ASCORBIC ACID [Concomitant]
  8. VITAMIN E [Concomitant]
  9. VITAMIN B-12 [Concomitant]

REACTIONS (1)
  - DYSPNOEA [None]
